FAERS Safety Report 6477057-X (Version None)
Quarter: 2009Q4

REPORT INFORMATION
  Report Type: 
  Country: None (occurrence: None)
  Receive Date: 20091204
  Receipt Date: 20091204
  Transmission Date: 20100525
  Serious: Yes (Other)
  Sender: FDA-Public Use
  Company Number: None

PATIENT
  Sex: Male
  Weight: 65.7716 kg

DRUGS (1)
  1. MAGNESIUM GLYCINATE 400 200 MG MAGNESIUM PER TABLET NUTRACEUTICAL CORP [Suspect]
     Indication: MINERAL SUPPLEMENTATION
     Dosage: 2 TABLETS PER DAY PO
     Route: 048
     Dates: start: 20091129, end: 20091202

REACTIONS (3)
  - CHOKING [None]
  - SENSATION OF FOREIGN BODY [None]
  - TABLET ISSUE [None]
